FAERS Safety Report 7918712-1 (Version None)
Quarter: 2011Q4

REPORT INFORMATION
  Report Type: 
  Country: None (occurrence: None)
  Receive Date: 20111114
  Receipt Date: 20111107
  Transmission Date: 20120403
  Serious: No
  Sender: FDA-Public Use
  Company Number: 2011SP003773

PATIENT
  Age: 23 Year
  Sex: Male

DRUGS (2)
  1. LATUDA [Suspect]
     Dosage: 40 MG;QD;ORAL
     Route: 048
     Dates: start: 20110101, end: 20110101
  2. LATUDA [Suspect]
     Dosage: 80 MG;QD;ORAL,
     Route: 048
     Dates: start: 20110101, end: 20110101

REACTIONS (2)
  - CELLULITIS [None]
  - ANGIOEDEMA [None]
